FAERS Safety Report 10037185 (Version 1)
Quarter: 2014Q1

REPORT INFORMATION
  Report Type: Spontaneous
  Country: US (occurrence: None)
  Receive Date: 20140306
  Receipt Date: 20140306
  Transmission Date: 20141002
  Serious: Yes (Hospitalization, Disabling)
  Sender: FDA-Public Use
  Company Number: 163-21880-13083532

PATIENT
  Age: 71 Year
  Sex: Female
  Weight: 78.47 kg

DRUGS (9)
  1. REVLIMID (LENALIDOMIDE) (CAPSULES) [Suspect]
     Indication: PLASMA CELL MYELOMA
     Route: 048
     Dates: start: 20130706
  2. DEXAMETHASONE (DEXAMETHASONE) [Concomitant]
  3. OXYCODONE HCL (OXYCODONE HYDROCHLORIDE) [Concomitant]
  4. VELCADE (BORTEZOMIB) [Concomitant]
  5. SYNTHROID (LEVOTHYROXINE SODIUM) [Concomitant]
  6. ACYCLOVIR (ACICLOVIR) [Concomitant]
  7. BACTRIM (BACTRIM) [Concomitant]
  8. OXYCONTIN (OXYCODONE HYDROCHLORIDE) [Concomitant]
  9. PERCOCET (OXYCOCET) [Concomitant]

REACTIONS (5)
  - Renal failure [None]
  - Heart rate decreased [None]
  - Nausea [None]
  - Anaemia [None]
  - Decreased appetite [None]
